FAERS Safety Report 23083214 (Version 1)
Quarter: 2023Q4

REPORT INFORMATION
  Report Type: Report from Study
  Country: CO (occurrence: CO)
  Receive Date: 20231019
  Receipt Date: 20231019
  Transmission Date: 20240110
  Serious: Yes (Other)
  Sender: FDA-Public Use
  Company Number: CO-ORPHANEU-2023007265

PATIENT

DRUGS (4)
  1. ISTURISA [Suspect]
     Active Substance: OSILODROSTAT PHOSPHATE
     Indication: Pituitary-dependent Cushing^s syndrome
     Dosage: 2 MILLIGRAM, Q12H
     Route: 048
     Dates: start: 20230705, end: 202308
  2. ISTURISA [Suspect]
     Active Substance: OSILODROSTAT PHOSPHATE
     Dosage: 5 MG (3 MG AM AND 2 MG PM), BID
     Route: 048
     Dates: start: 20230802, end: 202308
  3. ISTURISA [Suspect]
     Active Substance: OSILODROSTAT PHOSPHATE
     Dosage: 7 MG (4 MG AM AND 2 MG PM), BID
     Route: 048
     Dates: start: 20230819, end: 202308
  4. ISTURISA [Suspect]
     Active Substance: OSILODROSTAT PHOSPHATE
     Dosage: 5 MILLIGRAM, Q12H
     Route: 048
     Dates: start: 20230927

REACTIONS (1)
  - Hyperadrenocorticism [Not Recovered/Not Resolved]

NARRATIVE: CASE EVENT DATE: 20231005
